FAERS Safety Report 12608622 (Version 2)
Quarter: 2016Q3

REPORT INFORMATION
  Report Type: Spontaneous
  Country: US (occurrence: US)
  Receive Date: 20160729
  Receipt Date: 20160819
  Transmission Date: 20161109
  Serious: Yes (Hospitalization, Other)
  Sender: FDA-Public Use
  Company Number: US-BRISTOL-MYERS SQUIBB COMPANY-BMS-2016-060218

PATIENT
  Sex: Male
  Weight: 76.2 kg

DRUGS (1)
  1. ELIQUIS [Suspect]
     Active Substance: APIXABAN
     Indication: CEREBROVASCULAR ACCIDENT PROPHYLAXIS
     Dosage: 5 MG, BID
     Route: 048
     Dates: start: 20160616

REACTIONS (10)
  - Gastrooesophageal reflux disease [Unknown]
  - Enzyme level increased [Recovering/Resolving]
  - Surgery [Unknown]
  - Haematoma [Unknown]
  - Incorrect dose administered [Unknown]
  - Dyspnoea [Unknown]
  - Dizziness [Unknown]
  - Chest discomfort [Unknown]
  - Syncope [Unknown]
  - Insomnia [Unknown]
